FAERS Safety Report 19098009 (Version 4)
Quarter: 2022Q1

REPORT INFORMATION
  Report Type: Report from Study
  Country: CO (occurrence: CO)
  Receive Date: 20210406
  Receipt Date: 20220221
  Transmission Date: 20220423
  Serious: Yes (Other)
  Sender: FDA-Public Use
  Company Number: NVSC2021CO074493

PATIENT
  Age: 47 Year
  Sex: Female

DRUGS (2)
  1. TASIGNA [Suspect]
     Active Substance: NILOTINIB
     Indication: Chronic myeloid leukaemia
     Dosage: 300 MG, Q12H
     Route: 048
     Dates: start: 20120413, end: 20210228
  2. TASIGNA [Suspect]
     Active Substance: NILOTINIB
     Dosage: 300 MG, Q12H
     Route: 048
     Dates: start: 20120413

REACTIONS (18)
  - Kidney infection [Unknown]
  - Influenza [Unknown]
  - Viral infection [Unknown]
  - Illness [Unknown]
  - Menopause [Unknown]
  - Mood altered [Unknown]
  - Infection [Unknown]
  - Vulvovaginal dryness [Unknown]
  - Movement disorder [Unknown]
  - Vulvovaginal pruritus [Unknown]
  - Anxiety [Unknown]
  - Feeling hot [Unknown]
  - Malaise [Unknown]
  - Splenomegaly [Recovered/Resolved]
  - COVID-19 [Recovered/Resolved]
  - Oropharyngeal pain [Recovered/Resolved]
  - Headache [Recovered/Resolved]
  - Pyrexia [Recovered/Resolved]

NARRATIVE: CASE EVENT DATE: 20210325
